FAERS Safety Report 17750095 (Version 2)
Quarter: 2020Q2

REPORT INFORMATION
  Report Type: Spontaneous
  Country: US (occurrence: US)
  Receive Date: 20200506
  Receipt Date: 20200617
  Transmission Date: 20200714
  Serious: No
  Sender: FDA-Public Use
  Company Number: US-JNJFOC-20200503117

PATIENT
  Age: 66 Year
  Sex: Male

DRUGS (11)
  1. ERLEADA [Suspect]
     Active Substance: APALUTAMIDE
     Route: 048
  2. CHLORPHENIRAMINE                   /00072501/ [Concomitant]
     Active Substance: CHLORPHENIRAMINE
     Route: 065
  3. SIMVASTATIN. [Concomitant]
     Active Substance: SIMVASTATIN
     Route: 065
  4. ALPRAZOLAM. [Concomitant]
     Active Substance: ALPRAZOLAM
     Route: 065
  5. FAMOTIDINE. [Concomitant]
     Active Substance: FAMOTIDINE
     Route: 065
  6. FLUOXETINE [Concomitant]
     Active Substance: FLUOXETINE HYDROCHLORIDE
     Route: 065
  7. PROAIR                             /00972202/ [Concomitant]
     Active Substance: FLUTICASONE PROPIONATE
     Route: 065
  8. TAMSULOSIN [Concomitant]
     Active Substance: TAMSULOSIN
     Route: 065
  9. LOSARTAN                           /01121602/ [Concomitant]
     Active Substance: LOSARTAN
     Route: 065
  10. ERLEADA [Suspect]
     Active Substance: APALUTAMIDE
     Indication: PROSTATE CANCER
     Route: 048
     Dates: start: 20200403
  11. TEMAZEPAM. [Concomitant]
     Active Substance: TEMAZEPAM
     Route: 065

REACTIONS (8)
  - Pruritus [Recovered/Resolved]
  - Middle ear effusion [Unknown]
  - Incorrect dose administered [Unknown]
  - Hot flush [Unknown]
  - Seasonal allergy [Unknown]
  - Tinnitus [Unknown]
  - Off label use [Unknown]
  - Hyperhidrosis [Unknown]

NARRATIVE: CASE EVENT DATE: 2020
